FAERS Safety Report 7025082-2 (Version None)
Quarter: 2010Q3

REPORT INFORMATION
  Report Type: 
  Country: None (occurrence: None)
  Receive Date: 20100929
  Receipt Date: 20100917
  Transmission Date: 20110219
  Serious: Yes (Hospitalization)
  Sender: FDA-Public Use
  Company Number: 018516

PATIENT
  Sex: Female

DRUGS (6)
  1. KEPPRA [Suspect]
     Indication: EPILEPSY
     Dosage: 500 MG BID ORAL
     Route: 048
     Dates: start: 20090301
  2. LAMICTAL [Concomitant]
  3. FOLINIC ACID [Concomitant]
  4. MOPRAL /00661201/ [Concomitant]
  5. VITAMIN TAB [Concomitant]
  6. CORTICOSTEROID NOS [Concomitant]

REACTIONS (2)
  - ANAEMIA [None]
  - CONDITION AGGRAVATED [None]
